FAERS Safety Report 23226123 (Version 1)
Quarter: 2023Q4

REPORT INFORMATION
  Report Type: Report from Study
  Country: MX (occurrence: None)
  Receive Date: 20231124
  Receipt Date: 20231124
  Transmission Date: 20240110
  Serious: Yes (Hospitalization, Disabling, Other)
  Sender: FDA-Public Use
  Company Number: 2023A251387

PATIENT
  Age: 44 Year
  Sex: Male

DRUGS (7)
  1. DAPAGLIFLOZIN [Suspect]
     Active Substance: DAPAGLIFLOZIN
     Indication: Diabetes mellitus
     Route: 048
     Dates: start: 202308
  2. XIGDUO XR [Suspect]
     Active Substance: DAPAGLIFLOZIN PROPANEDIOL\METFORMIN HYDROCHLORIDE
     Indication: Diabetes mellitus
     Route: 048
     Dates: start: 2018, end: 202308
  3. ALPRAZOLAM [Interacting]
     Active Substance: ALPRAZOLAM
     Indication: Insomnia
     Route: 048
  4. ALPRAZOLAM [Interacting]
     Active Substance: ALPRAZOLAM
     Indication: Insomnia
     Route: 048
  5. METFORMIN [Concomitant]
     Active Substance: METFORMIN HYDROCHLORIDE
     Dosage: A DOSAGE DOSE (DF) IN THE MORNING AND A DF IN THE NIGHT
  6. LEVOTHYROXINE SODIUM [Concomitant]
     Active Substance: LEVOTHYROXINE SODIUM
     Indication: Thyroid disorder
     Dates: start: 2018
  7. INSULIN NOS [Concomitant]
     Active Substance: INSULIN NOS
     Dosage: A DOSAGE DOSE (DF) IN THE MORNING AND A DF IN THE NIGHT

REACTIONS (11)
  - Memory impairment [Recovering/Resolving]
  - Fall [Unknown]
  - Central nervous system infection [Unknown]
  - Hydrocephalus [Recovered/Resolved]
  - Diabetes mellitus inadequate control [Recovering/Resolving]
  - Shock [Recovered/Resolved]
  - Movement disorder [Recovered/Resolved]
  - Insomnia [Recovering/Resolving]
  - Gait disturbance [Unknown]
  - Headache [Unknown]
  - Muscular weakness [Unknown]

NARRATIVE: CASE EVENT DATE: 20200101
